FAERS Safety Report 6982553-2 (Version None)
Quarter: 2010Q3

REPORT INFORMATION
  Report Type: 
  Country: None (occurrence: None)
  Receive Date: 20100914
  Receipt Date: 20100216
  Transmission Date: 20110219
  Serious: Yes (Other)
  Sender: FDA-Public Use
  Company Number: US-PFIZER INC-2010022756

PATIENT
  Sex: Male
  Weight: 117.91 kg

DRUGS (5)
  1. LYRICA [Suspect]
     Indication: BURNING SENSATION
     Dosage: 75 MG, 2X/DAY
     Dates: start: 20100101, end: 20100101
  2. TOPROL-XL [Concomitant]
     Dosage: UNK
  3. PLAVIX [Concomitant]
     Dosage: UNK
  4. LOVASTATIN [Concomitant]
     Dosage: DAILY
  5. NIACIN [Concomitant]
     Dosage: 500 MG, 2X/DAY

REACTIONS (8)
  - ABDOMINAL PAIN UPPER [None]
  - ASTHENIA [None]
  - BURNING SENSATION [None]
  - DIZZINESS [None]
  - FEELING ABNORMAL [None]
  - GAIT DISTURBANCE [None]
  - OEDEMA PERIPHERAL [None]
  - WEIGHT INCREASED [None]
